FAERS Safety Report 4857310-3 (Version None)
Quarter: 2005Q4

REPORT INFORMATION
  Report Type: 
  Country: None (occurrence: None)
  Receive Date: 20051219
  Receipt Date: 20050726
  Transmission Date: 20060501
  Serious: No
  Sender: FDA-Public Use
  Company Number: US-GLAXOSMITHKLINE-A0567667A

PATIENT
  Age: 21 Year
  Sex: Female

DRUGS (2)
  1. NICODERM CQ [Suspect]
     Dates: end: 20050725
  2. NICODERM CQ [Suspect]
     Dates: end: 20050725

REACTIONS (6)
  - CHEST PAIN [None]
  - DIZZINESS [None]
  - HEADACHE [None]
  - HYPOAESTHESIA [None]
  - NAUSEA [None]
  - PARAESTHESIA [None]
